FAERS Safety Report 14955963 (Version 2)
Quarter: 2018Q4

REPORT INFORMATION
  Report Type: Spontaneous
  Country: FR (occurrence: FR)
  Receive Date: 20180531
  Receipt Date: 20181024
  Transmission Date: 20190204
  Serious: Yes (Other)
  Sender: FDA-Public Use
  Company Number: FR-MERCK KGAA-2048765

PATIENT
  Age: 58 Year
  Sex: Female

DRUGS (5)
  1. CYNOMEL [Concomitant]
     Active Substance: LIOTHYRONINE SODIUM
  2. EUTHYROX [Suspect]
     Active Substance: LEVOTHYROXINE SODIUM
     Indication: HYPOTHYROIDISM
     Dates: start: 20170627
  3. NOVOTHYROX [Suspect]
     Active Substance: LEVOTHYROXINE SODIUM
     Dates: start: 20171006
  4. NOVOTHYROX [Suspect]
     Active Substance: LEVOTHYROXINE SODIUM
     Dates: start: 20170918
  5. NOVOTHYROX [Suspect]
     Active Substance: LEVOTHYROXINE SODIUM
     Dates: start: 201711, end: 20171106

REACTIONS (28)
  - Feeling abnormal [None]
  - Fall [None]
  - Abnormal behaviour [None]
  - Sleep disorder [None]
  - Bruxism [None]
  - Gait disturbance [None]
  - Personal relationship issue [None]
  - Balance disorder [None]
  - Headache [None]
  - Palpitations [None]
  - Anxiety [None]
  - Depressed mood [None]
  - Mood swings [None]
  - Insomnia [None]
  - Suicidal ideation [None]
  - Social problem [None]
  - Impatience [None]
  - Euphoric mood [None]
  - Irritability [None]
  - Dyspnoea [None]
  - Joint injury [None]
  - Apathy [None]
  - Asthenia [None]
  - Hypertension [None]
  - Pain in extremity [None]
  - Somnolence [None]
  - Fatigue [None]
  - Tremor [None]

NARRATIVE: CASE EVENT DATE: 2017
